FAERS Safety Report 10676345 (Version 1)
Quarter: 2014Q4

REPORT INFORMATION
  Report Type: Spontaneous
  Country: GB (occurrence: GB)
  Receive Date: 20141226
  Receipt Date: 20141226
  Transmission Date: 20150529
  Serious: Yes (Other)
  Sender: FDA-Public Use
  Company Number: GB-CIPLA LTD.-2014GB02884

PATIENT

DRUGS (2)
  1. CARBOPLATIN. [Suspect]
     Active Substance: CARBOPLATIN
     Dosage: ONE DOSE
  2. CISPLATIN. [Suspect]
     Active Substance: CISPLATIN
     Dosage: 30, 50, AND 100 MG/M2

REACTIONS (1)
  - Acute kidney injury [Recovered/Resolved]
